FAERS Safety Report 23625778 (Version 1)
Quarter: 2024Q1

REPORT INFORMATION
  Report Type: Spontaneous
  Country: GB (occurrence: GB)
  Receive Date: 20240313
  Receipt Date: 20240313
  Transmission Date: 20240409
  Serious: Yes (Hospitalization, Other)
  Sender: FDA-Public Use
  Company Number: None

PATIENT
  Age: 68 Year
  Sex: Female
  Weight: 92 kg

DRUGS (52)
  1. AMOXICILLIN [Suspect]
     Active Substance: AMOXICILLIN
     Dosage: 125 MG/ 5 ML
     Route: 065
  2. AMOXICILLIN [Suspect]
     Active Substance: AMOXICILLIN
     Indication: Abdominal discomfort
     Dosage: 125 MG/ 5 ML (04-SEP-2021)
     Route: 065
     Dates: start: 20210904
  3. AMINOPHYLLINE [Suspect]
     Active Substance: AMINOPHYLLINE
     Indication: Depression
     Dosage: UNK
     Route: 065
  4. BIFIDOBACTERIUM LONGUM [Suspect]
     Active Substance: BIFIDOBACTERIUM LONGUM
     Indication: Abdominal discomfort
     Dosage: UNK
     Route: 065
  5. CARBAMAZEPINE [Suspect]
     Active Substance: CARBAMAZEPINE
     Indication: Product used for unknown indication
     Dosage: 750 MG, QD
     Route: 065
     Dates: start: 20100917
  6. CARBAMAZEPINE [Suspect]
     Active Substance: CARBAMAZEPINE
     Dosage: 750 MG, QD
     Route: 065
     Dates: start: 20200917
  7. CARBAMAZEPINE [Suspect]
     Active Substance: CARBAMAZEPINE
     Dosage: 750 MG, QD
     Route: 065
     Dates: start: 20210917
  8. CARBAMAZEPINE [Suspect]
     Active Substance: CARBAMAZEPINE
     Dosage: 750 MILLIGRAM, QD
     Route: 065
  9. CARBAMAZEPINE [Suspect]
     Active Substance: CARBAMAZEPINE
     Dosage: UNK
     Route: 065
  10. CARBOCYSTEINE [Suspect]
     Active Substance: CARBOCYSTEINE
     Indication: Depression
     Dosage: UNK
     Route: 065
  11. CHARCOAL ACTIVATED [Suspect]
     Active Substance: ACTIVATED CHARCOAL
     Dosage: 750 MG, QD
     Route: 065
  12. CHARCOAL ACTIVATED [Suspect]
     Active Substance: ACTIVATED CHARCOAL
     Indication: Product used for unknown indication
     Dosage: 750 MG
     Route: 065
  13. CIPROFLOXACIN HYDROCHLORIDE [Suspect]
     Active Substance: CIPROFLOXACIN HYDROCHLORIDE
     Indication: Depression
     Dosage: UNK
     Route: 065
  14. ENBREL [Suspect]
     Active Substance: ETANERCEPT
     Dosage: 50 MG, QW, MYCLIC PEN
     Route: 065
     Dates: start: 20210917
  15. ENBREL [Suspect]
     Active Substance: ETANERCEPT
     Dosage: 50 MG, QW, MYCLIC PEN SC
     Route: 058
     Dates: start: 20100917
  16. ENBREL [Suspect]
     Active Substance: ETANERCEPT
     Indication: Rheumatoid arthritis
     Dosage: UNK, (MYCLIC PEN)
     Route: 065
  17. GUANIDINE [Suspect]
     Active Substance: GUANIDINE
     Indication: Abdominal discomfort
     Dosage: UNK
     Route: 065
  18. IRBESARTAN [Suspect]
     Active Substance: IRBESARTAN
     Indication: Rheumatoid arthritis
     Route: 065
  19. LACTOBACILLUS RHAMNOSUS [Suspect]
     Active Substance: LACTOBACILLUS RHAMNOSUS
     Indication: Abdominal discomfort
     Dosage: UNK
     Route: 065
  20. METHOTREXATE [Suspect]
     Active Substance: METHOTREXATE
     Dosage: 17.5 MG, QW (WEEKLY)
     Route: 065
     Dates: start: 20100917
  21. METHOTREXATE [Suspect]
     Active Substance: METHOTREXATE
     Indication: Rheumatoid arthritis
     Dosage: 18 MG, QW (UNK UNK, WEEKLY (AT 17.5, WEEKLY)
     Route: 065
     Dates: start: 20100917
  22. METHOTREXATE [Suspect]
     Active Substance: METHOTREXATE
     Dosage: 18 MILLIGRAM QW
     Route: 065
  23. METHOTREXATE [Suspect]
     Active Substance: METHOTREXATE
     Dosage: UNK
     Route: 065
  24. METHOTREXATE [Suspect]
     Active Substance: METHOTREXATE
     Dosage: UNK, QW
     Route: 065
  25. OMEPRAZOLE [Suspect]
     Active Substance: OMEPRAZOLE
     Dosage: 20 MG, QD, BATCH AND LOT TESTED AND FOUND WITHIN SPECIFICATIONS, MEDICATION ERROR, MISUSE
     Route: 065
     Dates: start: 20100917
  26. OMEPRAZOLE [Suspect]
     Active Substance: OMEPRAZOLE
     Dosage: 20 MG, QD, BATCH AND LOT TESTED AND FOUND WITHIN SPECIFICATIONS, MEDICATION ERROR, MISUSE
     Route: 065
     Dates: start: 20200917
  27. OMEPRAZOLE [Suspect]
     Active Substance: OMEPRAZOLE
     Dosage: 20 MG, QH (480 MILLIGRAM DAILY; 20 MG, 2X/DAY)
     Route: 065
  28. OMEPRAZOLE [Suspect]
     Active Substance: OMEPRAZOLE
     Dosage: 20 MILLIGRAM QD
     Route: 065
  29. OMEPRAZOLE [Suspect]
     Active Substance: OMEPRAZOLE
     Indication: Abdominal discomfort
     Dosage: 40 MG, QD (20 MG, 2X/DAY)
     Route: 065
     Dates: start: 20100917
  30. OMEPRAZOLE [Suspect]
     Active Substance: OMEPRAZOLE
     Dosage: 80 MG, QD, BATCH AND LOT TESTED AND FOUND WITHIN SPECIFICATIONS, MEDICATION ERROR, MISUSE
     Route: 065
     Dates: start: 20100917
  31. OMEPRAZOLE [Suspect]
     Active Substance: OMEPRAZOLE
     Dosage: 80 MG, QD
     Route: 065
  32. OMEPRAZOLE [Suspect]
     Active Substance: OMEPRAZOLE
     Dosage: 20 MG, BID
     Route: 065
  33. OMEPRAZOLE [Suspect]
     Active Substance: OMEPRAZOLE
     Dosage: 80 MG QD
     Route: 065
     Dates: start: 20200917
  34. PROBIOTICS NOS [Suspect]
     Active Substance: PROBIOTICS NOS
     Indication: Rheumatoid arthritis
     Dosage: UNK
     Route: 065
  35. PHYLLOCONTIN [Suspect]
     Active Substance: AMINOPHYLLINE
     Indication: Product used for unknown indication
     Dosage: UNK
     Route: 065
  36. SULFAGUANIDINE [Suspect]
     Active Substance: SULFAGUANIDINE
     Indication: Abdominal discomfort
     Dosage: UNK
     Route: 065
  37. THEOPHYLLINE [Suspect]
     Active Substance: THEOPHYLLINE
     Indication: Abdominal discomfort
     Dosage: UNK
     Route: 065
  38. VENLAFAXINE [Suspect]
     Active Substance: VENLAFAXINE HYDROCHLORIDE
     Indication: Product used for unknown indication
     Dosage: UNK
     Route: 065
  39. VENLAFAXINE HYDROCHLORIDE [Suspect]
     Active Substance: VENLAFAXINE HYDROCHLORIDE
     Indication: Depression
     Dosage: 225 MG, QD (PROLONGED RELEASE,225 MG, DAILY)
     Route: 065
  40. VENLAFAXINE HYDROCHLORIDE [Suspect]
     Active Substance: VENLAFAXINE HYDROCHLORIDE
     Indication: Rheumatoid arthritis
  41. VENLAFAXINE HYDROCHLORIDE [Suspect]
     Active Substance: VENLAFAXINE HYDROCHLORIDE
     Indication: Depression
     Dosage: UNK
     Route: 065
  42. VENLAFAXINE HYDROCHLORIDE [Suspect]
     Active Substance: VENLAFAXINE HYDROCHLORIDE
     Indication: Rheumatoid arthritis
  43. ZINC [Suspect]
     Active Substance: PYRITHIONE ZINC\ZINC\ZINC CHLORIDE
     Indication: Pulmonary pain
     Dosage: UNK
     Route: 065
  44. BENDROFLUMETHIAZIDE [Concomitant]
     Active Substance: BENDROFLUMETHIAZIDE
     Indication: Depression
     Dosage: UNK
     Route: 065
  45. CABERGOLINE [Concomitant]
     Active Substance: CABERGOLINE
     Indication: Rheumatoid arthritis
     Dosage: UNK
     Route: 065
  46. ACTIVATED CHARCOAL [Concomitant]
     Active Substance: ACTIVATED CHARCOAL
     Indication: Depression
     Dosage: UNK
     Route: 065
  47. CETIRIZINE [Concomitant]
     Active Substance: CETIRIZINE HYDROCHLORIDE
     Indication: Abdominal discomfort
     Dosage: UNK
     Route: 065
  48. DOXYCYCLINE [Concomitant]
     Active Substance: DOXYCYCLINE
     Indication: Pituitary tumour
     Dosage: UNK
     Route: 065
  49. EZETIMIBE [Concomitant]
     Active Substance: EZETIMIBE
     Indication: Depression
     Dosage: UNK
     Route: 065
  50. FOLIC ACID [Concomitant]
     Active Substance: FOLIC ACID
     Indication: Abdominal discomfort
     Dosage: UNK
     Route: 065
  51. LEVOTHYROXINE [Concomitant]
     Active Substance: LEVOTHYROXINE\LEVOTHYROXINE SODIUM
     Indication: Pituitary tumour
     Dosage: UNK
     Route: 065
  52. ORUVAIL [Concomitant]
     Active Substance: KETOPROFEN
     Indication: Empty sella syndrome
     Dosage: UNK
     Route: 065

REACTIONS (13)
  - Obesity [Unknown]
  - Product dose omission issue [Unknown]
  - Amyloid arthropathy [Unknown]
  - Intentional product misuse [Unknown]
  - Lower respiratory tract infection [Not Recovered/Not Resolved]
  - Arthropathy [Unknown]
  - Off label use [Unknown]
  - Pulmonary pain [Unknown]
  - Drug abuse [Unknown]
  - Overdose [Unknown]
  - Knee arthroplasty [Unknown]
  - Abdominal discomfort [Unknown]
  - Rash [Not Recovered/Not Resolved]

NARRATIVE: CASE EVENT DATE: 20201001
